FAERS Safety Report 6110094-3 (Version None)
Quarter: 2009Q1

REPORT INFORMATION
  Report Type: 
  Country: None (occurrence: None)
  Receive Date: 20090310
  Receipt Date: 20090302
  Transmission Date: 20090719
  Serious: Yes (Hospitalization, Other)
  Sender: FDA-Public Use
  Company Number: US-MERCK-0708USA01474

PATIENT
  Age: 55 Year
  Sex: Female
  Weight: 73 kg

DRUGS (5)
  1. FOSAMAX [Suspect]
     Indication: OSTEOPOROSIS PROPHYLAXIS
     Route: 048
     Dates: start: 19951101, end: 19951201
  2. ZOMETA [Suspect]
     Indication: OSTEOPOROSIS PROPHYLAXIS
     Route: 042
     Dates: start: 20030101, end: 20050101
  3. ZOMETA [Suspect]
     Indication: NEOPLASM MALIGNANT
     Route: 042
     Dates: start: 20030101, end: 20050101
  4. TAMOXIFEN CITRATE [Concomitant]
     Route: 048
     Dates: start: 19950101
  5. AREDIA [Suspect]
     Indication: NEOPLASM MALIGNANT
     Route: 042
     Dates: start: 19960101, end: 20030101

REACTIONS (14)
  - ABSCESS [None]
  - ANXIETY [None]
  - APPENDIX DISORDER [None]
  - BREAST DISORDER [None]
  - CHEST WALL MASS [None]
  - DENTAL CARIES [None]
  - DEPRESSION [None]
  - EXOSTOSIS [None]
  - GINGIVAL BLEEDING [None]
  - IMPAIRED HEALING [None]
  - MIGRAINE [None]
  - OSTEONECROSIS [None]
  - PAIN IN EXTREMITY [None]
  - STOMATITIS [None]
